FAERS Safety Report 7271826-4 (Version None)
Quarter: 2011Q1

REPORT INFORMATION
  Report Type: 
  Country: None (occurrence: None)
  Receive Date: 20110203
  Receipt Date: 20110124
  Transmission Date: 20110831
  Serious: Yes (Other)
  Sender: FDA-Public Use
  Company Number: US-JNJFOC-20101200291

PATIENT
  Age: 72 Year
  Sex: Female
  Weight: 77.57 kg

DRUGS (18)
  1. REMICADE [Suspect]
     Indication: RHEUMATOID ARTHRITIS
     Route: 042
  2. VITAMIN D [Concomitant]
  3. RELAFEN [Concomitant]
  4. TOCOPHEROL CONCENTRATE CAP [Concomitant]
  5. PREDNISONE [Concomitant]
     Dosage: TAPER DOSE
  6. METHOTREXATE [Concomitant]
     Dosage: DURATION 15-20 YEARS
  7. IRON SUPPLEMENT [Concomitant]
  8. ATENOLOL [Concomitant]
  9. PROAIR HFA [Concomitant]
  10. SYMBICORT [Concomitant]
  11. CITRUCEL [Concomitant]
  12. LEUCOVORIN CALCIUM [Concomitant]
  13. OCUVITE NOS [Concomitant]
  14. CHLORTHALIDONE [Concomitant]
  15. LIPITOR [Concomitant]
  16. FOLIC ACID [Concomitant]
  17. ASCORBIC ACID [Concomitant]
  18. PREMARIN [Concomitant]

REACTIONS (10)
  - SELECTIVE IGM IMMUNODEFICIENCY [None]
  - INTERSTITIAL LUNG DISEASE [None]
  - BRONCHIECTASIS [None]
  - BRADYCARDIA [None]
  - NASAL CONGESTION [None]
  - LUNG NEOPLASM [None]
  - WEIGHT DECREASED [None]
  - FATIGUE [None]
  - SPLENOMEGALY [None]
  - DECREASED APPETITE [None]
